FAERS Safety Report 11931172 (Version 1)
Quarter: 2016Q1

REPORT INFORMATION
  Report Type: Spontaneous
  Country: US (occurrence: US)
  Receive Date: 20160120
  Receipt Date: 20160120
  Transmission Date: 20160526
  Serious: Yes (Other)
  Sender: FDA-Public Use
  Company Number: US-JNJFOC-20160112285

PATIENT
  Age: 29 Year
  Sex: Female
  Weight: 66.68 kg

DRUGS (2)
  1. SIMPONI [Suspect]
     Active Substance: GOLIMUMAB
     Indication: PSORIATIC ARTHROPATHY
     Dosage: 3.5 YEARS AGO
     Route: 058
  2. SIMPONI [Suspect]
     Active Substance: GOLIMUMAB
     Indication: PSORIATIC ARTHROPATHY
     Route: 058
     Dates: start: 201412

REACTIONS (6)
  - Remission not achieved [Unknown]
  - Premature baby [Recovered/Resolved]
  - Maternal exposure before pregnancy [Recovered/Resolved]
  - Incorrect product storage [Unknown]
  - Drug dose omission [Unknown]
  - Knee operation [Unknown]

NARRATIVE: CASE EVENT DATE: 201601
